FAERS Safety Report 7402666-0 (Version None)
Quarter: 2011Q2

REPORT INFORMATION
  Report Type: 
  Country: None (occurrence: None)
  Receive Date: 20110408
  Receipt Date: 20110329
  Transmission Date: 20111010
  Serious: Yes (Hospitalization)
  Sender: FDA-Public Use
  Company Number: US-JNJFOC-20110400286

PATIENT
  Sex: Female
  Weight: 147.3 kg

DRUGS (18)
  1. NEURONTIN [Concomitant]
     Route: 048
  2. HYDROCODONE BITARTRATE AND ACETAMINOPHEN [Concomitant]
  3. CALCIUM AND VIT D [Concomitant]
     Route: 048
  4. GOLIMUMAB [Suspect]
     Indication: RHEUMATOID ARTHRITIS
     Route: 058
  5. METHOTREXATE [Suspect]
     Indication: RHEUMATOID ARTHRITIS
     Route: 048
  6. METHOTREXATE [Suspect]
     Route: 048
  7. DARVOCET-N 100 [Concomitant]
     Route: 048
  8. LISINOPRIL [Concomitant]
     Route: 048
  9. HYDROCHLOROTHIAZIDE [Concomitant]
     Route: 048
  10. NORINYL-1 [Concomitant]
     Route: 048
  11. PRILOSEC [Concomitant]
     Route: 048
  12. OXYCODONE HCL AND ACETAMINOPHEN [Concomitant]
  13. MELOXICAM [Concomitant]
  14. GOLIMUMAB [Suspect]
     Route: 058
  15. LASIX [Concomitant]
     Route: 048
  16. PLACEBO [Suspect]
     Indication: RHEUMATOID ARTHRITIS
     Route: 058
  17. RESTORIL [Concomitant]
     Route: 048
  18. PREDNISONE [Concomitant]

REACTIONS (1)
  - INFECTIVE TENOSYNOVITIS [None]
